FAERS Safety Report 4393719-2 (Version None)
Quarter: 2004Q3

REPORT INFORMATION
  Report Type: 
  Country: None (occurrence: None)
  Receive Date: 20040709
  Receipt Date: 20040629
  Transmission Date: 20050211
  Serious: Yes (Other)
  Sender: FDA-Public Use
  Company Number: US-GLAXOSMITHKLINE-A0517408A

PATIENT

DRUGS (1)
  1. PAXIL [Suspect]
     Indication: DRUG USE FOR UNKNOWN INDICATION
     Dates: start: 20000101

REACTIONS (13)
  - AGGRESSION [None]
  - AGITATION [None]
  - ANXIETY [None]
  - CONFUSIONAL STATE [None]
  - DIARRHOEA [None]
  - DISTURBANCE IN ATTENTION [None]
  - DIZZINESS [None]
  - DRUG WITHDRAWAL SYNDROME [None]
  - HYPERHIDROSIS [None]
  - MEMORY IMPAIRMENT [None]
  - MOOD ALTERED [None]
  - NERVOUSNESS [None]
  - TREMOR [None]
